FAERS Safety Report 6021852-8 (Version None)
Quarter: 2008Q4

REPORT INFORMATION
  Report Type: 
  Country: None (occurrence: None)
  Receive Date: 20081229
  Receipt Date: 20081216
  Transmission Date: 20090506
  Serious: Yes (Other)
  Sender: FDA-Public Use
  Company Number: US-ROCHE-603719

PATIENT
  Sex: Male

DRUGS (1)
  1. PEGASYS [Suspect]
     Indication: INFECTION IN AN IMMUNOCOMPROMISED HOST
     Route: 065

REACTIONS (1)
  - CARDIAC FAILURE CONGESTIVE [None]
